FAERS Safety Report 4673799-7 (Version None)
Quarter: 2005Q2

REPORT INFORMATION
  Report Type: 
  Country: None (occurrence: None)
  Receive Date: 20050523
  Receipt Date: 20040917
  Transmission Date: 20051028
  Serious: Yes (Other)
  Sender: FDA-Public Use
  Company Number: 10062202-C622969-1

PATIENT
  Age: 27 Year
  Sex: Female
  Weight: 102.06 kg

DRUGS (1)
  1. LACTATED RINGER'S [Suspect]
     Dosage: IV
     Route: 042
     Dates: start: 20040915, end: 20040916

REACTIONS (1)
  - ANAPHYLACTIC REACTION [None]
